FAERS Safety Report 5480936-3 (Version None)
Quarter: 2007Q4

REPORT INFORMATION
  Report Type: 
  Country: None (occurrence: None)
  Receive Date: 20071009
  Receipt Date: 20071002
  Transmission Date: 20080405
  Serious: Yes (Other)
  Sender: FDA-Public Use
  Company Number: JP-PFIZER INC-2007037880

PATIENT
  Age: 74 Year
  Sex: Female

DRUGS (3)
  1. LIPITOR [Suspect]
     Indication: HYPERCHOLESTEROLAEMIA
     Dosage: DAILY DOSE:10MG
     Route: 048
     Dates: start: 20030325, end: 20070413
  2. DIOVAN [Suspect]
     Indication: HYPERTENSION
     Dosage: DAILY DOSE:80MG
     Route: 048
     Dates: start: 20031202, end: 20070413
  3. MERISLON [Suspect]
     Indication: DIZZINESS
     Dosage: DAILY DOSE:18MG
     Route: 048

REACTIONS (1)
  - PLATELET COUNT DECREASED [None]
